FAERS Safety Report 6285094-3 (Version None)
Quarter: 2009Q3

REPORT INFORMATION
  Report Type: 
  Country: None (occurrence: None)
  Receive Date: 20090727
  Receipt Date: 20090714
  Transmission Date: 20100115
  Serious: Yes (Hospitalization, Disabling)
  Sender: FDA-Public Use
  Company Number: US-MERCK-0905USA00172

PATIENT
  Age: 57 Year
  Sex: Female

DRUGS (8)
  1. FOSAMAX [Suspect]
     Indication: OSTEOPENIA
     Route: 048
     Dates: start: 19961101, end: 20041201
  2. FOSAMAX [Suspect]
     Route: 048
     Dates: start: 20010101
  3. FOSAMAX [Suspect]
     Indication: OSTEOPOROSIS
     Route: 048
     Dates: start: 19961101, end: 20041201
  4. FOSAMAX [Suspect]
     Route: 048
     Dates: start: 20010101
  5. ESTROGENS (UNSPECIFIED) [Concomitant]
     Route: 065
     Dates: start: 19610101
  6. ALBUTEROL [Concomitant]
     Indication: ASTHMA
     Route: 065
     Dates: start: 19900101
  7. DOXEPIN HYDROCHLORIDE [Concomitant]
     Indication: DEPRESSION
     Route: 065
     Dates: start: 19900101
  8. DOXEPIN HYDROCHLORIDE [Concomitant]
     Route: 065
     Dates: start: 19900101

REACTIONS (34)
  - ABSCESS [None]
  - ABSCESS ORAL [None]
  - ANAEMIA [None]
  - ANHEDONIA [None]
  - ARTHRITIS [None]
  - BACK PAIN [None]
  - CHEST PAIN [None]
  - DEPRESSION [None]
  - EXOSTOSIS [None]
  - FACIAL PALSY [None]
  - FACIAL PARESIS [None]
  - FISTULA [None]
  - GASTROOESOPHAGEAL REFLUX DISEASE [None]
  - GINGIVAL PAIN [None]
  - HAEMORRHOIDS [None]
  - HYPERTENSION [None]
  - IRRITABLE BOWEL SYNDROME [None]
  - LETHARGY [None]
  - LIP ULCERATION [None]
  - LYMPHADENOPATHY [None]
  - MACROCYTOSIS [None]
  - MUSCLE SPASMS [None]
  - NECK PAIN [None]
  - OBESITY [None]
  - OEDEMA MOUTH [None]
  - ORAL DISORDER [None]
  - ORAL PAIN [None]
  - ORAL TORUS [None]
  - OSTEONECROSIS [None]
  - RESORPTION BONE INCREASED [None]
  - SUBCUTANEOUS ABSCESS [None]
  - TEARFULNESS [None]
  - TENDONITIS [None]
  - TOOTH ABSCESS [None]
